FAERS Safety Report 6608830 (Version 3)
Quarter: 2017Q3

REPORT INFORMATION
  Report Type: Spontaneous
  Country: US (occurrence: US)
  Receive Date: 20080407
  Receipt Date: 20170901
  Transmission Date: 20171128
  Serious: Yes (Other)
  Sender: FDA-Public Use
  Company Number: PHBS2008US03630

PATIENT
  Age: 72 Year
  Sex: Male

DRUGS (1)
  1. IMATINIB [Suspect]
     Active Substance: IMATINIB
     Indication: CHRONIC MYELOID LEUKAEMIA
     Dosage: 400 MG, QD
     Route: 065

REACTIONS (3)
  - Precursor T-lymphoblastic lymphoma/leukaemia [Unknown]
  - Blast cell crisis [Unknown]
  - Pancytopenia [Recovered/Resolved]
